FAERS Safety Report 16383552 (Version 1)
Quarter: 2019Q2

REPORT INFORMATION
  Report Type: Spontaneous
  Country: US (occurrence: US)
  Receive Date: 20190516
  Receipt Date: 20190516
  Transmission Date: 20190711
  Serious: Yes (Other)
  Sender: FDA-Public Use
  Company Number: None

PATIENT
  Age: 28 Year
  Sex: Male
  Weight: 89 kg

DRUGS (3)
  1. METHADONE [Suspect]
     Active Substance: METHADONE HYDROCHLORIDE
     Indication: SICKLE CELL ANAEMIA WITH CRISIS
     Route: 048
     Dates: start: 20190110, end: 20190119
  2. METHADONE [Suspect]
     Active Substance: METHADONE HYDROCHLORIDE
     Indication: PAIN MANAGEMENT
     Route: 048
     Dates: start: 20190110, end: 20190119
  3. LETERMOVIR [Concomitant]
     Active Substance: LETERMOVIR
     Dates: start: 20190118

REACTIONS (8)
  - Hypopnoea [None]
  - Oxygen saturation decreased [None]
  - Sedation [None]
  - Drug interaction [None]
  - Somnolence [None]
  - Miosis [None]
  - Hypoxia [None]
  - Respiratory rate decreased [None]

NARRATIVE: CASE EVENT DATE: 20190131
